FAERS Safety Report 10230817 (Version 1)
Quarter: 2014Q2

REPORT INFORMATION
  Report Type: Spontaneous
  Country: US (occurrence: None)
  Receive Date: 20140610
  Receipt Date: 20140610
  Transmission Date: 20141212
  Serious: Yes (Disabling)
  Sender: FDA-Public Use
  Company Number: None

PATIENT
  Age: 58 Year
  Sex: Female
  Weight: 70.76 kg

DRUGS (2)
  1. BOTOX [Suspect]
     Indication: HEADACHE
     Dosage: EVERY 3 MONTHS?GIVEN INTO/UNDER THE SKIN
  2. BOTOX [Suspect]
     Indication: MUSCLE SPASMS
     Dosage: EVERY 3 MONTHS?GIVEN INTO/UNDER THE SKIN

REACTIONS (3)
  - Asthenia [None]
  - Headache [None]
  - Multiple sclerosis relapse [None]
